FAERS Safety Report 9732690 (Version 3)
Quarter: 2014Q1

REPORT INFORMATION
  Report Type: Spontaneous
  Country: JP (occurrence: JP)
  Receive Date: 20131205
  Receipt Date: 20140121
  Transmission Date: 20141002
  Serious: Yes (Hospitalization)
  Sender: FDA-Public Use
  Company Number: JP-SA-2013SA124335

PATIENT
  Age: 94 Year
  Sex: Female
  Weight: 45 kg

DRUGS (7)
  1. SERMION [Suspect]
     Indication: PRODUCT USED FOR UNKNOWN INDICATION
     Route: 048
     Dates: end: 20131120
  2. MYSLEE [Suspect]
     Indication: INSOMNIA
     Route: 048
     Dates: start: 2012, end: 20131120
  3. ZOPICLONE [Suspect]
     Indication: INSOMNIA
     Route: 048
     Dates: start: 201309, end: 20131120
  4. MEVALOTIN [Concomitant]
     Indication: DYSLIPIDAEMIA
     Dates: end: 20131120
  5. SELARA [Concomitant]
     Indication: HYPERTENSION
     Dates: end: 20131120
  6. NORVASC [Concomitant]
     Indication: HYPERTENSION
  7. METHYLCOBAL [Concomitant]

REACTIONS (1)
  - Dyskinesia [Recovering/Resolving]
